FAERS Safety Report 6539300-8 (Version None)
Quarter: 2010Q1

REPORT INFORMATION
  Report Type: 
  Country: None (occurrence: None)
  Receive Date: 20100115
  Receipt Date: 20100106
  Transmission Date: 20100710
  Serious: Yes (Other)
  Sender: FDA-Public Use
  Company Number: JP-JNJFOC-20100104802

PATIENT
  Age: 29 Year
  Sex: Female

DRUGS (3)
  1. CRAVIT [Suspect]
     Indication: SINUSITIS
     Route: 048
  2. CELESTAMINE TAB [Concomitant]
     Route: 065
  3. IPD [Concomitant]
     Route: 065

REACTIONS (4)
  - ANAPHYLACTOID REACTION [None]
  - CYANOSIS [None]
  - DYSPHONIA [None]
  - PHARYNGEAL ERYTHEMA [None]
